FAERS Safety Report 4927285-7 (Version None)
Quarter: 2006Q1

REPORT INFORMATION
  Report Type: 
  Country: None (occurrence: None)
  Receive Date: 20060228
  Receipt Date: 20050511
  Transmission Date: 20060701
  Serious: No
  Sender: FDA-Public Use
  Company Number: US-GLAXOSMITHKLINE-A0558147A

PATIENT
  Sex: Female

DRUGS (3)
  1. IMITREX [Suspect]
     Indication: MIGRAINE
     Dosage: 1INJ TWO TIMES PER WEEK
     Route: 058
     Dates: start: 19970101
  2. FIORICET [Concomitant]
  3. TOPAMAX [Concomitant]

REACTIONS (1)
  - INJECTION SITE URTICARIA [None]
